FAERS Safety Report 8467432-6 (Version None)
Quarter: 2012Q2

REPORT INFORMATION
  Report Type: 
  Country: None (occurrence: None)
  Receive Date: 20120626
  Receipt Date: 20120425
  Transmission Date: 20120825
  Serious: Yes (Hospitalization)
  Sender: FDA-Public Use
  Company Number: US-ASTRAZENECA-2011SE43107

PATIENT
  Age: 22886 Day
  Sex: Male

DRUGS (6)
  1. CAPRELSA [Suspect]
     Indication: THYROID CANCER
     Route: 048
     Dates: start: 20110701
  2. LEVOXYL [Concomitant]
     Dosage: 150 UG CONT
  3. NEURONTIN [Concomitant]
  4. DIOVAN [Concomitant]
  5. LOPERAMIDE HCL [Concomitant]
  6. IMODIUM [Concomitant]

REACTIONS (6)
  - COUGH [None]
  - SKIN EXFOLIATION [None]
  - BLOOD PRESSURE INCREASED [None]
  - WEIGHT DECREASED [None]
  - HYPERTENSION [None]
  - HYPOAESTHESIA [None]
